FAERS Safety Report 5800012-7 (Version None)
Quarter: 2008Q3

REPORT INFORMATION
  Report Type: 
  Country: None (occurrence: None)
  Receive Date: 20080703
  Receipt Date: 20080624
  Transmission Date: 20090109
  Serious: Yes (Hospitalization)
  Sender: FDA-Public Use
  Company Number: US-GENENTECH-263353

PATIENT
  Sex: Male
  Weight: 26.2 kg

DRUGS (3)
  1. HUMATROPE [Suspect]
     Indication: SEPTO-OPTIC DYSPLASIA
     Dosage: 1.3 MG, 6/WEEK
     Route: 058
     Dates: start: 20040302
  2. SYNTHROID [Concomitant]
     Indication: DRUG USE FOR UNKNOWN INDICATION
     Dosage: 62.5 A?G, QAM
     Route: 048
  3. CORTEF [Concomitant]
     Indication: DRUG USE FOR UNKNOWN INDICATION
     Dosage: 5 MG, TID
     Route: 048

REACTIONS (1)
  - HYPOGLYCAEMIA [None]
